FAERS Safety Report 5482184-X (Version None)
Quarter: 2007Q4

REPORT INFORMATION
  Report Type: 
  Country: None (occurrence: None)
  Receive Date: 20071005
  Receipt Date: 20070919
  Transmission Date: 20080405
  Serious: Yes (Other)
  Sender: FDA-Public Use
  Company Number: DSA_30668_2007

PATIENT
  Sex: Male

DRUGS (7)
  1. CARDIZEM [Suspect]
     Indication: DRUG USE FOR UNKNOWN INDICATION
     Dosage: 180 MG QD ORAL
     Route: 048
  2. SIMVASTATIN [Suspect]
     Indication: HYPERCHOLESTEROLAEMIA
     Dosage: 80 MG QD ORAL, 40 MG QD, ORAL
     Route: 048
     Dates: start: 20070506
  3. SIMVASTATIN [Suspect]
     Indication: HYPERCHOLESTEROLAEMIA
     Dosage: 80 MG QD ORAL, 40 MG QD, ORAL
     Route: 048
     Dates: start: 20070507
  4. ISMO [Concomitant]
  5. DIURAL [Concomitant]
  6. ALBYL-E [Concomitant]
  7. ATENOLOL [Concomitant]

REACTIONS (1)
  - RHABDOMYOLYSIS [None]
